FAERS Safety Report 24692504 (Version 1)
Quarter: 2024Q4

REPORT INFORMATION
  Report Type: Spontaneous
  Country: US (occurrence: None)
  Receive Date: 20241203
  Receipt Date: 20241203
  Transmission Date: 20250115
  Serious: No
  Sender: Public
  Company Number: None

PATIENT
  Age: 58 Year
  Sex: Male
  Weight: 92 kg

DRUGS (2)
  1. ELIQUIS [Suspect]
     Active Substance: APIXABAN
     Indication: Deep vein thrombosis
     Dosage: 1 UNK - UNKNOWN TWICE A DAY ORAL ?
     Route: 048
     Dates: end: 20240708
  2. WARFARIN SODIUM [Suspect]
     Active Substance: WARFARIN SODIUM
     Indication: Deep vein thrombosis
     Dates: start: 20240708

REACTIONS (4)
  - Hiccups [None]
  - Barrett^s oesophagus [None]
  - Gastrointestinal haemorrhage [None]
  - International normalised ratio decreased [None]

NARRATIVE: CASE EVENT DATE: 20240710
